FAERS Safety Report 22299782 (Version 2)
Quarter: 2023Q2

REPORT INFORMATION
  Report Type: Spontaneous
  Country: DE (occurrence: DE)
  Receive Date: 20230509
  Receipt Date: 20230518
  Transmission Date: 20230722
  Serious: Yes (Other)
  Sender: FDA-Public Use
  Company Number: DE-TEVA-2023-DE-2885326

PATIENT
  Age: 42 Year
  Sex: Female

DRUGS (5)
  1. COTRIM [Suspect]
     Active Substance: SULFAMETHOXAZOLE\TRIMETHOPRIM
     Indication: Urinary tract infection
     Route: 048
  2. TRIMIPRAMINE MALEATE [Concomitant]
     Active Substance: TRIMIPRAMINE MALEATE
     Indication: Sleep disorder
  3. IBUPROFEN [Concomitant]
     Active Substance: IBUPROFEN
     Indication: Product used for unknown indication
     Dosage: AS REQUIRED
  4. VITAMIN B [Concomitant]
     Active Substance: VITAMIN B
     Indication: Product used for unknown indication
  5. Vitamin D complex [Concomitant]
     Indication: Product used for unknown indication

REACTIONS (8)
  - Swelling face [Unknown]
  - Eye swelling [Unknown]
  - Hepatic fibrosis [Unknown]
  - Critical illness [Recovering/Resolving]
  - Asthenia [Unknown]
  - Influenza like illness [Unknown]
  - Drug hypersensitivity [Unknown]
  - Hepatic enzyme increased [Recovering/Resolving]
